FAERS Safety Report 23236129 (Version 1)
Quarter: 2023Q4

REPORT INFORMATION
  Report Type: Report from Study
  Country: US (occurrence: US)
  Receive Date: 20231128
  Receipt Date: 20231128
  Transmission Date: 20240110
  Serious: No
  Sender: FDA-Public Use
  Company Number: US-INCYTE CORPORATION-2023IN011230

PATIENT

DRUGS (2)
  1. JAKAFI [Suspect]
     Active Substance: RUXOLITINIB
     Indication: Polycythaemia vera
     Dosage: 10 MILLIGRAM, BID
     Route: 065
  2. JAKAFI [Suspect]
     Active Substance: RUXOLITINIB
     Dosage: 10MG IN THE AM AND THEN SPLITTING A TABLET IN HALF AND TAKING 5MG IN THE PM
     Route: 065

REACTIONS (12)
  - Hyperhidrosis [Unknown]
  - Abdominal pain upper [Unknown]
  - Balance disorder [Unknown]
  - Palpitations [Unknown]
  - Pain [Unknown]
  - Hypoaesthesia [Unknown]
  - Wrong technique in product usage process [Unknown]
  - Headache [Unknown]
  - Constipation [Unknown]
  - Diarrhoea [Unknown]
  - Flatulence [Unknown]
  - Dizziness [Unknown]
